FAERS Safety Report 10064222 (Version 3)
Quarter: 2014Q2

REPORT INFORMATION
  Report Type: Report from Study
  Country: FR (occurrence: FR)
  Receive Date: 20140408
  Receipt Date: 20140422
  Transmission Date: 20141212
  Serious: Yes (Hospitalization)
  Sender: FDA-Public Use
  Company Number: FR-ROCHE-1243835

PATIENT
  Age: 78 Year
  Sex: Male

DRUGS (1)
  1. VISMODEGIB [Suspect]
     Indication: BASAL CELL CARCINOMA
     Dosage: LAST DOSE PRIOR TO SAE: 25/MAY/2013.
     Route: 048
     Dates: start: 20130208

REACTIONS (1)
  - General physical health deterioration [Recovered/Resolved with Sequelae]
